FAERS Safety Report 5567582-8 (Version None)
Quarter: 2007Q4

REPORT INFORMATION
  Report Type: 
  Country: None (occurrence: None)
  Receive Date: 20071219
  Receipt Date: 20071210
  Transmission Date: 20080405
  Serious: Yes (Other)
  Sender: FDA-Public Use
  Company Number: DE-PFIZER INC-2007095869

PATIENT
  Sex: Female
  Weight: 67 kg

DRUGS (2)
  1. AROMASIN [Suspect]
     Indication: BREAST CANCER
     Dosage: TEXT:1 TABLET DAILY
     Route: 048
  2. OSTAC [Concomitant]

REACTIONS (1)
  - FIBROUS HISTIOCYTOMA [None]
